FAERS Safety Report 25611977 (Version 1)
Quarter: 2025Q3

REPORT INFORMATION
  Report Type: Spontaneous
  Country: US (occurrence: US)
  Receive Date: 20250728
  Receipt Date: 20250728
  Transmission Date: 20251020
  Serious: Yes (Hospitalization, Other)
  Sender: TORRENT PHARMA INC.
  Company Number: US-TORRENT-00014446

PATIENT
  Age: 29 Year
  Sex: Male

DRUGS (3)
  1. LEVETIRACETAM [Interacting]
     Active Substance: LEVETIRACETAM
     Indication: Seizure
     Route: 065
  2. VALPROIC ACID [Interacting]
     Active Substance: VALPROIC ACID
     Indication: Seizure
     Route: 065
  3. CLOBAZAM [Interacting]
     Active Substance: CLOBAZAM
     Indication: Seizure
     Route: 065

REACTIONS (4)
  - Drug interaction [Unknown]
  - Partial seizures with secondary generalisation [Unknown]
  - Condition aggravated [Unknown]
  - Status epilepticus [Unknown]
